FAERS Safety Report 9431478 (Version 2)
Quarter: 2013Q3

REPORT INFORMATION
  Report Type: Spontaneous
  Country: US (occurrence: US)
  Receive Date: 20130730
  Receipt Date: 20130909
  Transmission Date: 20140515
  Serious: Yes (Other)
  Sender: FDA-Public Use
  Company Number: US-RB-056529-13

PATIENT
  Age: 45 Year
  Sex: Female

DRUGS (1)
  1. GENERIC BURPENORPHINE NALOXONE [Suspect]
     Indication: PRODUCT USED FOR UNKNOWN INDICATION
     Dosage: DOSING DETAILS UNKNOWN
     Route: 065

REACTIONS (1)
  - Foot fracture [Not Recovered/Not Resolved]
